FAERS Safety Report 7713539-8 (Version None)
Quarter: 2011Q3

REPORT INFORMATION
  Report Type: 
  Country: None (occurrence: None)
  Receive Date: 20110826
  Receipt Date: 20110823
  Transmission Date: 20111222
  Serious: Yes (Death, Other)
  Sender: FDA-Public Use
  Company Number: US-PFIZER INC-2011154443

PATIENT
  Sex: Male

DRUGS (1)
  1. RAPAMUNE [Suspect]
     Indication: LUNG TRANSPLANT
     Dosage: VARYING FROM 3 MG TO 1.5 MG DAILY
     Route: 048
     Dates: start: 20101201

REACTIONS (2)
  - FUNGAL INFECTION [None]
  - RESPIRATORY FAILURE [None]
